FAERS Safety Report 12552095 (Version 2)
Quarter: 2016Q3

REPORT INFORMATION
  Report Type: Spontaneous
  Country: US (occurrence: US)
  Receive Date: 20160713
  Receipt Date: 20160713
  Transmission Date: 20161109
  Serious: Yes (Other)
  Sender: FDA-Public Use
  Company Number: US-CIPLA LTD.-2016US09520

PATIENT

DRUGS (8)
  1. SIMVASTATIN. [Suspect]
     Active Substance: SIMVASTATIN
     Indication: HYPERTENSION
     Dosage: UNK
     Route: 065
  2. ATENOLOL. [Suspect]
     Active Substance: ATENOLOL
     Indication: HYPERTENSION
     Dosage: UNK
     Route: 065
  3. MEGESTROL [Concomitant]
     Active Substance: MEGESTROL
     Indication: SUPPORTIVE CARE
     Dosage: UNK, AS NEEDED
     Route: 065
  4. GEMCITABINE [Suspect]
     Active Substance: GEMCITABINE\GEMCITABINE HYDROCHLORIDE
     Indication: PANCREATIC CARCINOMA
     Dosage: 1000 MG/M2, WEEKLY EVERY THREE OF FOUR WEEKS
     Route: 042
  5. SERTRALINE [Suspect]
     Active Substance: SERTRALINE HYDROCHLORIDE
     Dosage: UNK
     Route: 065
  6. ASPIRIN. [Suspect]
     Active Substance: ASPIRIN
     Indication: HYPERTENSION
     Dosage: UNK
     Route: 065
  7. PROCHLORPERAZINE. [Concomitant]
     Active Substance: PROCHLORPERAZINE
     Indication: SUPPORTIVE CARE
     Dosage: UNK, AS NEEDED
     Route: 065
  8. ERYTHROPOETIN [Concomitant]
     Active Substance: ERYTHROPOIETIN
     Dosage: 40000 UT, WEEKLY
     Route: 058

REACTIONS (4)
  - Bone marrow toxicity [Unknown]
  - Cachexia [Unknown]
  - Diarrhoea [Unknown]
  - Thrombotic microangiopathy [Not Recovered/Not Resolved]
